FAERS Safety Report 14227559 (Version 3)
Quarter: 2018Q2

REPORT INFORMATION
  Report Type: Spontaneous
  Country: US (occurrence: US)
  Receive Date: 20171127
  Receipt Date: 20180628
  Transmission Date: 20180711
  Serious: Yes (Life-Threatening, Hospitalization, Other)
  Sender: FDA-Public Use
  Company Number: US-OTSUKA-2017_021474

PATIENT
  Age: 41 Year
  Sex: Female
  Weight: 114.74 kg

DRUGS (68)
  1. ABILIFY [Suspect]
     Active Substance: ARIPIPRAZOLE
     Dosage: 30 MG, QD [4/13/05-START ABILIFY 10 MG/DAY FOR 7 DAYS THEN 15 MG/DAY TO 04/20/05 04/21/05 TO 04/26/0
     Route: 048
     Dates: start: 20060215, end: 20060531
  2. ABILIFY [Suspect]
     Active Substance: ARIPIPRAZOLE
     Dosage: 30 MG, QD [4/13/05-START ABILIFY 10 MG/DAY FOR 7 DAYS THEN 15 MG/DAY TO 04/20/05 04/21/05 TO 04/26/0
     Route: 048
     Dates: start: 20130328, end: 201312
  3. ABILIFY [Suspect]
     Active Substance: ARIPIPRAZOLE
     Dosage: 15 MG, QD [4/13/05-START ABILIFY 10 MG/DAY FOR 7 DAYS THEN 15 MG/DAY TO 04/20/05 04/21/05 TO 04/26/0
     Route: 048
     Dates: start: 20140420, end: 20140505
  4. KLONOPIN [Concomitant]
     Active Substance: CLONAZEPAM
     Dosage: 1 MG, UNK
     Route: 065
  5. ZOLOFT [Concomitant]
     Active Substance: SERTRALINE HYDROCHLORIDE
     Dosage: UNK
     Route: 065
     Dates: start: 200609, end: 200703
  6. TRAZODONE [Concomitant]
     Active Substance: TRAZODONE HYDROCHLORIDE
     Indication: PRODUCT USED FOR UNKNOWN INDICATION
     Dosage: UNK
     Route: 065
     Dates: start: 201407, end: 201409
  7. RISPERIDONE. [Concomitant]
     Active Substance: RISPERIDONE
     Dosage: 3 MG, QD
     Route: 048
  8. ABILIFY [Suspect]
     Active Substance: ARIPIPRAZOLE
     Dosage: 10 MG, QD [4/13/05-START ABILIFY 10 MG/DAY FOR 7 DAYS THEN 15 MG/DAY TO 04/20/05 04/21/05 TO 04/26/0
     Route: 048
     Dates: start: 20050427, end: 200505
  9. ABILIFY [Suspect]
     Active Substance: ARIPIPRAZOLE
     Dosage: 5 MG, QD [4/13/05-START ABILIFY 10 MG/DAY FOR 7 DAYS THEN 15 MG/DAY TO 04/20/05 04/21/05 TO 04/26/05
     Route: 048
     Dates: start: 200505, end: 200506
  10. ALPRAZOLAM 1 A PHARMA [Concomitant]
     Indication: PRODUCT USED FOR UNKNOWN INDICATION
     Dosage: UNK
     Route: 065
  11. HALDOL [Concomitant]
     Active Substance: HALOPERIDOL
     Indication: PRODUCT USED FOR UNKNOWN INDICATION
     Dosage: UNK
     Route: 065
     Dates: start: 200612, end: 200706
  12. LITHIUM. [Concomitant]
     Active Substance: LITHIUM
     Indication: PRODUCT USED FOR UNKNOWN INDICATION
     Dosage: UNK
     Route: 065
  13. ATIVAN [Concomitant]
     Active Substance: LORAZEPAM
     Dosage: UNK
     Route: 065
     Dates: start: 200610, end: 201011
  14. TRAMADOL. [Concomitant]
     Active Substance: TRAMADOL
     Indication: PRODUCT USED FOR UNKNOWN INDICATION
     Dosage: UNK
     Route: 065
     Dates: start: 201303
  15. WELLBUTRIN [Concomitant]
     Active Substance: BUPROPION HYDROCHLORIDE
     Indication: PRODUCT USED FOR UNKNOWN INDICATION
     Dosage: UNK
     Route: 065
  16. ZOLOFT [Concomitant]
     Active Substance: SERTRALINE HYDROCHLORIDE
     Dosage: UNK
     Route: 065
     Dates: start: 200506
  17. BABY ASPIRIN [Concomitant]
     Active Substance: ASPIRIN
     Indication: PRODUCT USED FOR UNKNOWN INDICATION
     Dosage: UNK
     Route: 065
  18. ABILIFY [Suspect]
     Active Substance: ARIPIPRAZOLE
     Indication: PSYCHOTIC DISORDER
     Dosage: 15 MG, QD [4/13/05-START ABILIFY 10 MG/DAY FOR 7 DAYS THEN 15 MG/DAY TO 04/20/05 04/21/05 TO 04/26/0
     Route: 048
     Dates: start: 20050421, end: 20050426
  19. ABILIFY [Suspect]
     Active Substance: ARIPIPRAZOLE
     Dosage: 10 MG, QD [4/13/05-START ABILIFY 10 MG/DAY FOR 7 DAYS THEN 15 MG/DAY TO 04/20/05 04/21/05 TO 04/26/0
     Route: 048
     Dates: start: 20050616, end: 20050913
  20. ABILIFY [Suspect]
     Active Substance: ARIPIPRAZOLE
     Dosage: 40 MG, QD [4/13/05-START ABILIFY 10 MG/DAY FOR 7 DAYS THEN 15 MG/DAY TO 04/20/05 04/21/05 TO 04/26/0
     Route: 048
     Dates: start: 20060601, end: 200608
  21. ABILIFY [Suspect]
     Active Substance: ARIPIPRAZOLE
     Dosage: 15 MG, QD [4/13/05-START ABILIFY 10 MG/DAY FOR 7 DAYS THEN 15 MG/DAY TO 04/20/05 04/21/05 TO 04/26/0
     Route: 048
     Dates: start: 20120424, end: 201208
  22. ABILIFY [Suspect]
     Active Substance: ARIPIPRAZOLE
     Dosage: 30 MG, QD [4/13/05-START ABILIFY 10 MG/DAY FOR 7 DAYS THEN 15 MG/DAY TO 04/20/05 04/21/05 TO 04/26/0
     Route: 048
     Dates: start: 201403, end: 201404
  23. AMBIEN [Concomitant]
     Active Substance: ZOLPIDEM TARTRATE
     Indication: PRODUCT USED FOR UNKNOWN INDICATION
     Dosage: UNK
     Route: 065
     Dates: start: 201303
  24. RESTORIL [Concomitant]
     Active Substance: TEMAZEPAM
     Indication: PRODUCT USED FOR UNKNOWN INDICATION
     Dosage: UNK
     Route: 065
     Dates: start: 201303, end: 201306
  25. RISPERDAL [Concomitant]
     Active Substance: RISPERIDONE
     Indication: PRODUCT USED FOR UNKNOWN INDICATION
     Dosage: UNK
     Route: 065
     Dates: start: 201405
  26. RISPERDAL [Concomitant]
     Active Substance: RISPERIDONE
     Dosage: 1 MG, QD
     Route: 048
  27. HYDROCODONE BITARTRATE AND ACETAMINOPHEN [Concomitant]
     Active Substance: ACETAMINOPHEN\HYDROCODONE BITARTRATE
     Dosage: 1 DF, UNK (5-325 MG, 1 TABLET AS NEEDED)
     Route: 048
     Dates: start: 2015
  28. TYLENOL [Concomitant]
     Active Substance: ACETAMINOPHEN
     Indication: PAIN
     Dosage: UNK
     Route: 065
  29. ABILIFY [Suspect]
     Active Substance: ARIPIPRAZOLE
     Indication: MAJOR DEPRESSION
     Dosage: 10 MG, QD [4/13/05-START ABILIFY 10 MG/DAY FOR 7 DAYS THEN 15 MG/DAY TO 04/20/05 04/21/05 TO 04/26/0
     Route: 048
     Dates: start: 20050413, end: 20050419
  30. ABILIFY [Suspect]
     Active Substance: ARIPIPRAZOLE
     Dosage: 30 MG, QD [4/13/05-START ABILIFY 10 MG/DAY FOR 7 DAYS THEN 15 MG/DAY TO 04/20/05 04/21/05 TO 04/26/0
     Route: 048
     Dates: start: 200608, end: 201204
  31. RISPERDAL [Concomitant]
     Active Substance: RISPERIDONE
     Dosage: 4 MG, BID
     Route: 048
  32. MEDROXYPROGESTERONE [Concomitant]
     Active Substance: MEDROXYPROGESTERONE
     Dosage: UNK
     Route: 065
     Dates: start: 201212, end: 201303
  33. CLINDAMYCIN. [Concomitant]
     Active Substance: CLINDAMYCIN
     Indication: PRODUCT USED FOR UNKNOWN INDICATION
     Dosage: UNK
     Route: 065
     Dates: start: 201209
  34. CIPROFLOXACIN. [Concomitant]
     Active Substance: CIPROFLOXACIN
     Indication: PRODUCT USED FOR UNKNOWN INDICATION
     Dosage: UNK
     Route: 065
     Dates: start: 201301
  35. RISPERIDONE. [Concomitant]
     Active Substance: RISPERIDONE
     Dosage: 5 MG, QD (AT BEDTIME)
     Route: 048
  36. ABILIFY [Suspect]
     Active Substance: ARIPIPRAZOLE
     Dosage: 7.5 MG, QD [4/13/05-START ABILIFY 10 MG/DAY FOR 7 DAYS THEN 15 MG/DAY TO 04/20/05 04/21/05 TO 04/26/
     Route: 048
     Dates: start: 201208, end: 201210
  37. AUGMENTIN [Concomitant]
     Active Substance: AMOXICILLIN\CLAVULANATE POTASSIUM
     Indication: PRODUCT USED FOR UNKNOWN INDICATION
     Dosage: UNK
     Route: 065
     Dates: start: 201310, end: 201402
  38. IMITREX [Concomitant]
     Active Substance: SUMATRIPTAN SUCCINATE
     Indication: PRODUCT USED FOR UNKNOWN INDICATION
     Dosage: UNK
     Route: 065
     Dates: start: 201303
  39. ZOLOFT [Concomitant]
     Active Substance: SERTRALINE HYDROCHLORIDE
     Indication: PRODUCT USED FOR UNKNOWN INDICATION
     Dosage: UNK
     Route: 065
     Dates: start: 2003, end: 200404
  40. VISTARIL [Concomitant]
     Active Substance: HYDROXYZINE PAMOATE
     Indication: PRODUCT USED FOR UNKNOWN INDICATION
     Dosage: UNK
     Route: 065
     Dates: start: 201011
  41. LUNESTA [Concomitant]
     Active Substance: ESZOPICLONE
     Indication: PRODUCT USED FOR UNKNOWN INDICATION
     Dosage: UNK
     Route: 065
     Dates: start: 201409
  42. CALCIUM CITRATE + D [Concomitant]
     Indication: PRODUCT USED FOR UNKNOWN INDICATION
     Dosage: 1 DF, UNK (STRENGHT 1000-400)
     Route: 065
  43. ABILIFY [Suspect]
     Active Substance: ARIPIPRAZOLE
     Dosage: 15 MG, QD [4/13/05-START ABILIFY 10 MG/DAY FOR 7 DAYS THEN 15 MG/DAY TO 04/20/05 04/21/05 TO 04/26/0
     Route: 048
     Dates: start: 201210, end: 20130327
  44. ABILIFY [Suspect]
     Active Substance: ARIPIPRAZOLE
     Dosage: 15 MG, QD [4/13/05-START ABILIFY 10 MG/DAY FOR 7 DAYS THEN 15 MG/DAY TO 04/20/05 04/21/05 TO 04/26/0
     Route: 048
     Dates: start: 201312, end: 201403
  45. ATENOLOL. [Concomitant]
     Active Substance: ATENOLOL
     Indication: PRODUCT USED FOR UNKNOWN INDICATION
     Dosage: UNK
     Route: 065
     Dates: start: 201204
  46. DOXYCYCLINE. [Concomitant]
     Active Substance: DOXYCYCLINE
     Indication: PRODUCT USED FOR UNKNOWN INDICATION
     Dosage: UNK
     Route: 065
     Dates: start: 201405
  47. ATIVAN [Concomitant]
     Active Substance: LORAZEPAM
     Indication: PRODUCT USED FOR UNKNOWN INDICATION
     Dosage: UNK
     Route: 065
     Dates: start: 200504, end: 200511
  48. RISPERDAL [Concomitant]
     Active Substance: RISPERIDONE
     Dosage: 0.5 MG, QD
     Route: 048
  49. TRAZODONE [Concomitant]
     Active Substance: TRAZODONE HYDROCHLORIDE
     Dosage: UNK
     Route: 065
     Dates: start: 201603
  50. RISPERIDONE. [Concomitant]
     Active Substance: RISPERIDONE
     Indication: PRODUCT USED FOR UNKNOWN INDICATION
     Dosage: 2 MG, QD
     Route: 048
     Dates: start: 20150212
  51. ASPIR 81 [Concomitant]
     Indication: PRODUCT USED FOR UNKNOWN INDICATION
     Dosage: 81 MG, QD
     Route: 048
     Dates: start: 20150212
  52. ABILIFY [Suspect]
     Active Substance: ARIPIPRAZOLE
     Indication: SCHIZOPHRENIA
     Dosage: 15 MG, QD (4/13/05-START ABILIFY 10 MG/DAY FOR 7 DAYS THEN 15 MG/DAY TO 04/20/05 04/21/05 TO 04/26/0
     Route: 048
     Dates: start: 20050420
  53. ABILIFY [Suspect]
     Active Substance: ARIPIPRAZOLE
     Dosage: 15 MG, QD [4/13/05-START ABILIFY 10 MG/DAY FOR 7 DAYS THEN 15 MG/DAY TO 04/20/05 04/21/05 TO 04/26/0
     Route: 048
     Dates: start: 20050914, end: 20051115
  54. ABILIFY [Suspect]
     Active Substance: ARIPIPRAZOLE
     Dosage: 20 MG, QD [4/13/05-START ABILIFY 10 MG/DAY FOR 7 DAYS THEN 15 MG/DAY TO 04/20/05 04/21/05 TO 04/26/0
     Route: 048
     Dates: start: 20051116, end: 20060214
  55. CYMBALTA [Concomitant]
     Active Substance: DULOXETINE HYDROCHLORIDE
     Indication: PRODUCT USED FOR UNKNOWN INDICATION
     Dosage: UNK
     Route: 065
     Dates: start: 200712, end: 201604
  56. FLONASE [Concomitant]
     Active Substance: FLUTICASONE PROPIONATE
     Indication: PRODUCT USED FOR UNKNOWN INDICATION
     Dosage: UNK
     Route: 065
     Dates: start: 201312, end: 201502
  57. KLONOPIN [Concomitant]
     Active Substance: CLONAZEPAM
     Indication: PRODUCT USED FOR UNKNOWN INDICATION
     Dosage: UNK
     Route: 065
     Dates: start: 201303, end: 201408
  58. RISPERDAL [Concomitant]
     Active Substance: RISPERIDONE
     Dosage: 3 MG, UNK
     Route: 048
     Dates: start: 20150212
  59. NAPROXEN. [Concomitant]
     Active Substance: NAPROXEN
     Indication: PRODUCT USED FOR UNKNOWN INDICATION
     Dosage: UNK
     Route: 065
     Dates: start: 201106
  60. OXYCODONE [Concomitant]
     Active Substance: OXYCODONE
     Indication: PRODUCT USED FOR UNKNOWN INDICATION
     Dosage: UNK
     Route: 065
     Dates: start: 201209
  61. HYDROCODONE BITARTRATE AND ACETAMINOPHEN [Concomitant]
     Active Substance: ACETAMINOPHEN\HYDROCODONE BITARTRATE
     Indication: PAIN
     Dosage: 1 DF, (10-325 MG EVERY 4-6 HRS AS NEEDED).
     Route: 048
  62. FLONASE [Concomitant]
     Active Substance: FLUTICASONE PROPIONATE
     Dosage: 1 DF, UNK (50 MCG/ACT IN BOTH NOSTRIL)
     Route: 045
  63. INDERAL [Concomitant]
     Active Substance: PROPRANOLOL HYDROCHLORIDE
     Indication: PRODUCT USED FOR UNKNOWN INDICATION
     Dosage: UNK
     Route: 065
     Dates: start: 200807, end: 200808
  64. RISPERDAL [Concomitant]
     Active Substance: RISPERIDONE
     Dosage: 4 MG, QD
     Route: 048
  65. MEDROXYPROGESTERONE [Concomitant]
     Active Substance: MEDROXYPROGESTERONE
     Indication: PRODUCT USED FOR UNKNOWN INDICATION
     Dosage: UNK
     Route: 065
     Dates: start: 200706, end: 200908
  66. HYDROCODONE [Concomitant]
     Active Substance: HYDROCODONE
     Indication: PRODUCT USED FOR UNKNOWN INDICATION
     Dosage: UNK
     Route: 065
     Dates: start: 201209
  67. HYDROCODONE [Concomitant]
     Active Substance: HYDROCODONE
     Dosage: UNK, BID
     Route: 065
     Dates: start: 201406
  68. LORTAB [Concomitant]
     Active Substance: ACETAMINOPHEN\HYDROCODONE BITARTRATE
     Indication: PRODUCT USED FOR UNKNOWN INDICATION
     Dosage: UNK 5-325 MG (2 TABLETS)
     Route: 065
     Dates: start: 20160803

REACTIONS (54)
  - Weight increased [Unknown]
  - Joint injury [Not Recovered/Not Resolved]
  - Fracture malunion [Not Recovered/Not Resolved]
  - Paranoia [Not Recovered/Not Resolved]
  - Decreased appetite [Unknown]
  - Mental disorder [Unknown]
  - Major depression [Not Recovered/Not Resolved]
  - Limb injury [Unknown]
  - Bone pain [Not Recovered/Not Resolved]
  - Fibula fracture [Unknown]
  - Osteoarthritis [Not Recovered/Not Resolved]
  - Otitis media [Unknown]
  - Hyperacusis [Unknown]
  - Migraine [Unknown]
  - Cough [Unknown]
  - Hallucination [Unknown]
  - Pain in extremity [Unknown]
  - Arthralgia [Unknown]
  - Suicide attempt [Unknown]
  - Urinary incontinence [Recovered/Resolved]
  - Menorrhagia [Not Recovered/Not Resolved]
  - Lipid metabolism disorder [Unknown]
  - Delusion [Unknown]
  - Fatigue [Unknown]
  - Nasal congestion [Unknown]
  - Economic problem [Unknown]
  - Tibia fracture [Not Recovered/Not Resolved]
  - Obesity [Not Recovered/Not Resolved]
  - Injury [Unknown]
  - Rash [Unknown]
  - Goitre [Not Recovered/Not Resolved]
  - Ingrowing nail [Unknown]
  - Skin abrasion [Unknown]
  - Deafness [Not Recovered/Not Resolved]
  - Hypertension [Unknown]
  - Sleep apnoea syndrome [Unknown]
  - Urine odour abnormal [Unknown]
  - Uterine enlargement [Not Recovered/Not Resolved]
  - Cellulitis [Unknown]
  - Rhinitis allergic [Not Recovered/Not Resolved]
  - Gambling disorder [Recovered/Resolved]
  - Prescribed overdose [Unknown]
  - Circumstance or information capable of leading to medication error [Unknown]
  - Suicidal ideation [Unknown]
  - Cystocele [Unknown]
  - Ear pain [Unknown]
  - Acute sinusitis [Unknown]
  - Vaginal disorder [Unknown]
  - Tympanic membrane atrophic [Not Recovered/Not Resolved]
  - Loss of personal independence in daily activities [Not Recovered/Not Resolved]
  - Emotional distress [Unknown]
  - Tinnitus [Not Recovered/Not Resolved]
  - Hyperinsulinaemia [Not Recovered/Not Resolved]
  - Product use in unapproved indication [Unknown]

NARRATIVE: CASE EVENT DATE: 201011
